FAERS Safety Report 19804562 (Version 1)
Quarter: 2021Q3

REPORT INFORMATION
  Report Type: Spontaneous
  Country: IN (occurrence: IN)
  Receive Date: 20210908
  Receipt Date: 20210908
  Transmission Date: 20211014
  Serious: Yes (Death)
  Sender: FDA-Public Use
  Company Number: IN-PFIZER INC-202101120206

PATIENT
  Age: 69 Year

DRUGS (1)
  1. CRIZALK [Suspect]
     Active Substance: CRIZOTINIB
     Indication: LUNG NEOPLASM
     Dosage: UNK
     Dates: start: 20200627

REACTIONS (1)
  - Death [Fatal]

NARRATIVE: CASE EVENT DATE: 20210829
